FAERS Safety Report 4739117-0 (Version None)
Quarter: 2005Q3

REPORT INFORMATION
  Report Type: 
  Country: None (occurrence: None)
  Receive Date: 20050810
  Receipt Date: 20050419
  Transmission Date: 20060218
  Serious: No
  Sender: FDA-Public Use
  Company Number: US-GLAXOSMITHKLINE-A0554828A

PATIENT
  Age: 19 Year
  Sex: Female

DRUGS (3)
  1. PAXIL CR [Suspect]
     Indication: OBSESSIVE-COMPULSIVE DISORDER
     Dosage: 37.5MG PER DAY
     Route: 048
  2. VIACTIV [Concomitant]
  3. ZOLOFT [Concomitant]

REACTIONS (7)
  - COLD SWEAT [None]
  - CRYING [None]
  - DISTURBANCE IN ATTENTION [None]
  - HEADACHE [None]
  - HYPERHIDROSIS [None]
  - NAUSEA [None]
  - RESTLESSNESS [None]
